FAERS Safety Report 18150880 (Version 1)
Quarter: 2020Q3

REPORT INFORMATION
  Report Type: Report from Study
  Country: None (occurrence: TN)
  Receive Date: 20200814
  Receipt Date: 20200814
  Transmission Date: 20201103
  Serious: Yes (Hospitalization)
  Sender: FDA-Public Use
  Company Number: TN-ABBVIE-20K-160-3524452-00

PATIENT
  Age: 34 Year
  Sex: Male

DRUGS (4)
  1. HUMIRA [Suspect]
     Active Substance: ADALIMUMAB
     Indication: ANKYLOSING SPONDYLITIS
     Route: 058
     Dates: start: 20181022, end: 201904
  2. HUMIRA [Suspect]
     Active Substance: ADALIMUMAB
     Route: 058
     Dates: start: 201909, end: 20200528
  3. HUMIRA [Suspect]
     Active Substance: ADALIMUMAB
     Route: 058
     Dates: start: 201906, end: 201908
  4. HUMIRA [Suspect]
     Active Substance: ADALIMUMAB
     Route: 058
     Dates: start: 20200728

REACTIONS (1)
  - Dental implantation [Recovered/Resolved]

NARRATIVE: CASE EVENT DATE: 202006
